FAERS Safety Report 8966748 (Version 2)
Quarter: 2013Q2

REPORT INFORMATION
  Report Type: Spontaneous
  Country: IN (occurrence: IN)
  Receive Date: 20121217
  Receipt Date: 20130408
  Transmission Date: 20140414
  Serious: Yes (Other)
  Sender: FDA-Public Use
  Company Number: IN-JNJFOC-20121205544

PATIENT
  Age: 63 Year
  Sex: Female

DRUGS (5)
  1. RISPERIDONE [Suspect]
     Indication: MAJOR DEPRESSION
     Route: 065
  2. PAROXETINE [Concomitant]
     Indication: MAJOR DEPRESSION
     Route: 065
  3. PAROXETINE [Concomitant]
     Indication: MAJOR DEPRESSION
     Route: 065
  4. THIAMINE [Concomitant]
     Indication: PRODUCT USED FOR UNKNOWN INDICATION
     Route: 065
  5. FOLIC ACID [Concomitant]
     Indication: PRODUCT USED FOR UNKNOWN INDICATION
     Route: 065

REACTIONS (1)
  - Rabbit syndrome [Recovered/Resolved]
